FAERS Safety Report 14186828 (Version 1)
Quarter: 2017Q4

REPORT INFORMATION
  Report Type: Spontaneous
  Country: JP (occurrence: JP)
  Receive Date: 20171114
  Receipt Date: 20171114
  Transmission Date: 20180321
  Serious: Yes (Death)
  Sender: FDA-Public Use
  Company Number: JP-CELGENEUS-JPN-20170801654

PATIENT
  Age: 73 Year
  Sex: Female
  Weight: 33 kg

DRUGS (20)
  1. LENADEX [Suspect]
     Active Substance: DEXAMETHASONE ACETATE
     Indication: PLASMA CELL MYELOMA
     Dosage: 40MG
     Route: 048
  2. SELBEX [Concomitant]
     Active Substance: TEPRENONE
     Indication: ILL-DEFINED DISORDER
     Route: 048
  3. FOLIAMIN [Concomitant]
     Active Substance: FOLIC ACID
     Indication: ILL-DEFINED DISORDER
     Route: 048
  4. MAGLAX [Concomitant]
     Active Substance: MAGNESIUM OXIDE
     Indication: ILL-DEFINED DISORDER
     Route: 048
  5. PARIET [Concomitant]
     Active Substance: RABEPRAZOLE SODIUM
     Indication: ILL-DEFINED DISORDER
     Route: 048
  6. NEUTROGIN [Concomitant]
     Active Substance: LENOGRASTIM
     Indication: ILL-DEFINED DISORDER
     Route: 058
     Dates: start: 20110728
  7. GRAN [Concomitant]
     Active Substance: FILGRASTIM
     Indication: ILL-DEFINED DISORDER
     Route: 058
  8. REVLIMID [Suspect]
     Active Substance: LENALIDOMIDE
     Indication: PLASMA CELL MYELOMA
     Dosage: 15 MILLIGRAM
     Route: 048
     Dates: start: 20130909, end: 20161120
  9. BACTRAMIN [Concomitant]
     Active Substance: SULFAMETHOXAZOLE\TRIMETHOPRIM
     Indication: ILL-DEFINED DISORDER
     Route: 065
  10. LOXOPROFEN [Concomitant]
     Active Substance: LOXOPROFEN
     Indication: PAIN
     Route: 048
  11. ZOLEDRONIC [Concomitant]
     Active Substance: ZOLEDRONIC ACID
     Indication: PLASMA CELL MYELOMA
     Route: 050
     Dates: start: 20150728
  12. TEPRENONE [Concomitant]
     Active Substance: TEPRENONE
     Indication: ILL-DEFINED DISORDER
     Route: 048
  13. METHYCOBAL [Concomitant]
     Active Substance: METHYLCOBALAMIN
     Indication: ILL-DEFINED DISORDER
     Route: 050
  14. NEXIUM [Concomitant]
     Active Substance: ESOMEPRAZOLE MAGNESIUM
     Indication: ILL-DEFINED DISORDER
     Route: 048
  15. STRONG RESTAMIN CORTISONE [Concomitant]
     Indication: ILL-DEFINED DISORDER
     Route: 062
     Dates: start: 20150811
  16. PURSENNID [Concomitant]
     Active Substance: SENNOSIDES A AND B
     Indication: CONSTIPATION
     Route: 048
  17. ALOSITOL [Concomitant]
     Active Substance: ALLOPURINOL
     Indication: ILL-DEFINED DISORDER
     Route: 048
  18. LASIX [Concomitant]
     Active Substance: FUROSEMIDE
     Indication: ILL-DEFINED DISORDER
     Route: 048
  19. MAGNESIUM OXIDE. [Concomitant]
     Active Substance: MAGNESIUM OXIDE
     Indication: ILL-DEFINED DISORDER
     Route: 048
  20. BAYASPIRIN [Concomitant]
     Active Substance: ASPIRIN
     Indication: ILL-DEFINED DISORDER
     Route: 048

REACTIONS (3)
  - Squamous cell carcinoma of the oral cavity [Fatal]
  - Lymphocyte count decreased [Unknown]
  - Blood immunoglobulin M increased [Unknown]

NARRATIVE: CASE EVENT DATE: 20130924
